FAERS Safety Report 7564827-X (Version None)
Quarter: 2011Q2

REPORT INFORMATION
  Report Type: 
  Country: None (occurrence: None)
  Receive Date: 20110622
  Receipt Date: 20110620
  Transmission Date: 20111010
  Serious: Yes (Other)
  Sender: FDA-Public Use
  Company Number: US-MYLANLABS-2010S1023250

PATIENT
  Age: 48 Year
  Sex: Female
  Weight: 90.72 kg

DRUGS (14)
  1. CLOZAPINE [Suspect]
     Route: 048
     Dates: start: 20110201, end: 20110201
  2. BUSPIRONE HCL [Concomitant]
  3. DIVALPROEX SODIUM [Concomitant]
  4. M.V.I. [Concomitant]
  5. ABILIFY [Concomitant]
  6. CLOZAPINE [Suspect]
     Route: 048
     Dates: start: 20090729, end: 20110201
  7. CLOZAPINE [Suspect]
  8. RANITIDINE [Concomitant]
  9. BENZTROPINE MESYLATE [Concomitant]
  10. LEXAPRO [Concomitant]
  11. ASPIRIN [Concomitant]
  12. TOPAMAX [Concomitant]
  13. METFORMIN HCL [Concomitant]
  14. POLYETHYLENE GLYCOL [Concomitant]

REACTIONS (2)
  - GRANULOCYTOPENIA [None]
  - WHITE BLOOD CELL COUNT DECREASED [None]
